FAERS Safety Report 5991213-6 (Version None)
Quarter: 2008Q4

REPORT INFORMATION
  Report Type: 
  Country: None (occurrence: None)
  Receive Date: 20081211
  Receipt Date: 20081203
  Transmission Date: 20090506
  Serious: Yes (Hospitalization, Other)
  Sender: FDA-Public Use
  Company Number: US-ELI_LILLY_AND_COMPANY-US200812000943

PATIENT
  Age: 42 Year
  Sex: Male

DRUGS (3)
  1. HUMALOG [Suspect]
     Indication: DIABETES MELLITUS
  2. HUMALOG MIX 75/25 [Suspect]
     Indication: DIABETES MELLITUS
  3. HUMULIN N [Suspect]
     Dates: start: 20040101, end: 20080901

REACTIONS (5)
  - BLOOD GLUCOSE INCREASED [None]
  - DRUG DISPENSING ERROR [None]
  - EMPHYSEMA [None]
  - PNEUMONIA [None]
  - WRONG DRUG ADMINISTERED [None]
